FAERS Safety Report 6438643-6 (Version None)
Quarter: 2009Q4

REPORT INFORMATION
  Report Type: 
  Country: None (occurrence: None)
  Receive Date: 20091110
  Receipt Date: 20091016
  Transmission Date: 20100525
  Serious: Yes (Hospitalization, Other)
  Sender: FDA-Public Use
  Company Number: 2009AC000262

PATIENT
  Age: 48 Year
  Sex: Male

DRUGS (21)
  1. DIGOXIN [Suspect]
     Dosage: 125 MCG; PO
     Route: 048
     Dates: start: 20070801
  2. COREG [Concomitant]
  3. AMIODARONE HCL [Concomitant]
  4. COUMADIN [Concomitant]
  5. FUROSEMIDE [Concomitant]
  6. CELEBREX [Concomitant]
  7. INDOMETHACIN [Concomitant]
  8. HYDROCODONE [Concomitant]
  9. PROPOXYPHEN [Concomitant]
  10. LISINOPRIL [Concomitant]
  11. METOPROLOL TARTRATE [Concomitant]
  12. LIPITOR [Concomitant]
  13. RANITIDINE [Concomitant]
  14. CARDIZEM [Concomitant]
  15. SODIUM CHLORIDE [Concomitant]
  16. CORDARONE [Concomitant]
  17. PROTONIX [Concomitant]
  18. TYLENOL (CAPLET) [Concomitant]
  19. ASPIRIN [Concomitant]
  20. TOPROL-XL [Concomitant]
  21. LOVENOX [Concomitant]

REACTIONS (14)
  - ATRIAL FLUTTER [None]
  - CARDIOMYOPATHY [None]
  - CHEST DISCOMFORT [None]
  - DYSPNOEA [None]
  - ECONOMIC PROBLEM [None]
  - MULTIPLE INJURIES [None]
  - NAUSEA [None]
  - SLEEP APNOEA SYNDROME [None]
  - SNORING [None]
  - SOMNOLENCE [None]
  - SURGERY [None]
  - TACHYCARDIA [None]
  - TACHYPNOEA [None]
  - VOMITING [None]
